FAERS Safety Report 6698732-8 (Version None)
Quarter: 2010Q2

REPORT INFORMATION
  Report Type: 
  Country: None (occurrence: None)
  Receive Date: 20100427
  Receipt Date: 20100415
  Transmission Date: 20101027
  Serious: Yes (Other)
  Sender: FDA-Public Use
  Company Number: US-ELI_LILLY_AND_COMPANY-US201003005812

PATIENT
  Sex: Female

DRUGS (1)
  1. BYETTA [Suspect]
     Indication: GLUCOSE TOLERANCE IMPAIRED

REACTIONS (3)
  - HEPATIC FAILURE [None]
  - OFF LABEL USE [None]
  - RENAL FAILURE [None]
